FAERS Safety Report 17889752 (Version 3)
Quarter: 2020Q3

REPORT INFORMATION
  Report Type: Spontaneous
  Country: US (occurrence: US)
  Receive Date: 20200612
  Receipt Date: 20200807
  Transmission Date: 20201103
  Serious: Yes (Hospitalization)
  Sender: FDA-Public Use
  Company Number: US-TEVA-2020-US-1247967

PATIENT
  Age: 39 Year
  Sex: Male

DRUGS (1)
  1. SYNRIBO [Suspect]
     Active Substance: OMACETAXINE MEPESUCCINATE
     Indication: PRODUCT USED FOR UNKNOWN INDICATION
     Dosage: DOSAGE:2.3MG/0.66ML, FREQUENCY:BID X14 DAYS OF A 28 DAY CYCLE, FORM OF ADMIN: VIAL
     Route: 058
     Dates: start: 20200606

REACTIONS (4)
  - Hyperhidrosis [Unknown]
  - Blood count abnormal [Not Recovered/Not Resolved]
  - Back pain [Unknown]
  - Chills [Unknown]

NARRATIVE: CASE EVENT DATE: 2020
